FAERS Safety Report 8473608-4 (Version None)
Quarter: 2012Q2

REPORT INFORMATION
  Report Type: 
  Country: None (occurrence: None)
  Receive Date: 20120628
  Receipt Date: 20110808
  Transmission Date: 20120825
  Serious: Yes (Death)
  Sender: FDA-Public Use
  Company Number: US-MYLANLABS-2011S1013966

PATIENT
  Age: 55 Year
  Sex: Male
  Weight: 56.88 kg

DRUGS (19)
  1. DILANTIN [Concomitant]
     Route: 048
     Dates: start: 20060202
  2. COLACE [Concomitant]
     Route: 048
     Dates: start: 20070306
  3. CLOZAPINE [Suspect]
     Dates: start: 20060101, end: 20110627
  4. SINGULAIR [Concomitant]
     Route: 048
     Dates: start: 20080702
  5. ASCORBIC ACID [Concomitant]
     Route: 048
     Dates: start: 20090729
  6. CLOZAPINE [Suspect]
     Dates: start: 20060101, end: 20110627
  7. MEGACE [Concomitant]
     Dates: start: 20110613
  8. REMERON [Concomitant]
     Route: 048
     Dates: start: 20090917
  9. CARAFATE [Concomitant]
     Route: 048
     Dates: start: 20090505
  10. CLOZAPINE [Suspect]
     Indication: DELUSION
     Dates: start: 20060101, end: 20110627
  11. CLOZAPINE [Suspect]
     Dates: start: 20060101, end: 20110627
  12. SIMVASTATIN [Concomitant]
     Route: 048
     Dates: start: 20091212
  13. HALDOL [Concomitant]
     Route: 048
     Dates: start: 20100917
  14. CLOZAPINE [Suspect]
     Indication: SCHIZOPHRENIA
     Dates: start: 20060101, end: 20110627
  15. DILANTIN [Concomitant]
     Route: 048
     Dates: start: 20061125
  16. TRAZODONE HCL [Concomitant]
     Route: 048
     Dates: start: 20060918
  17. OSCAL D /00944201/ [Concomitant]
     Route: 048
     Dates: start: 20060323
  18. CLOZAPINE [Suspect]
     Indication: HALLUCINATION
     Dates: start: 20060101, end: 20110627
  19. PROPRANOLOL [Concomitant]
     Route: 048
     Dates: start: 20070818

REACTIONS (1)
  - LUNG NEOPLASM MALIGNANT [None]
